FAERS Safety Report 14681874 (Version 1)
Quarter: 2018Q1

REPORT INFORMATION
  Report Type: Spontaneous
  Country: US (occurrence: US)
  Receive Date: 20180326
  Receipt Date: 20180326
  Transmission Date: 20180509
  Serious: Yes (Other)
  Sender: FDA-Public Use
  Company Number: US-SHIRE-US201808376

PATIENT

DRUGS (2)
  1. FIRAZYR [Suspect]
     Active Substance: ICATIBANT ACETATE
     Indication: PRODUCT USED FOR UNKNOWN INDICATION
     Dosage: 30 MG/3 ML
     Route: 065
  2. CIMZIA [Concomitant]
     Active Substance: CERTOLIZUMAB PEGOL
     Indication: RHEUMATOID ARTHRITIS

REACTIONS (10)
  - Immunosuppression [Unknown]
  - Ear infection [Unknown]
  - Tympanic membrane perforation [Unknown]
  - Eustachian tube dysfunction [Unknown]
  - Pain [Unknown]
  - White blood cell count increased [Unknown]
  - Fall [Unknown]
  - Hereditary angioedema [Unknown]
  - Pneumonia [Unknown]
  - Pyrexia [Unknown]
